FAERS Safety Report 5405655-0 (Version None)
Quarter: 2007Q3

REPORT INFORMATION
  Report Type: 
  Country: None (occurrence: None)
  Receive Date: 20070806
  Receipt Date: 20070727
  Transmission Date: 20080115
  Serious: Yes (Other)
  Sender: FDA-Public Use
  Company Number: PHBS2007BR12649

PATIENT
  Age: 7 Year
  Sex: Male
  Weight: 32 kg

DRUGS (2)
  1. RITALIN [Suspect]
     Indication: ATTENTION DEFICIT/HYPERACTIVITY DISORDER
     Dosage: 5 MG, BID
     Route: 048
     Dates: start: 20070723
  2. DEPAKENE [Suspect]
     Dosage: 3 TABLETS IN MORNING AND 2 TABLETS AT NIGHT
     Route: 048

REACTIONS (5)
  - AGITATION [None]
  - AMNESIA [None]
  - DIZZINESS [None]
  - HEADACHE [None]
  - UNRESPONSIVE TO STIMULI [None]
